FAERS Safety Report 5760059-6 (Version None)
Quarter: 2008Q2

REPORT INFORMATION
  Report Type: 
  Country: None (occurrence: None)
  Receive Date: 20080605
  Receipt Date: 20080529
  Transmission Date: 20081010
  Serious: Yes (Hospitalization)
  Sender: FDA-Public Use
  Company Number: IL-SANOFI-SYNTHELABO-A01200805992

PATIENT
  Age: 61 Year
  Sex: Male

DRUGS (4)
  1. FLUOROURACIL [Concomitant]
     Route: 065
     Dates: start: 20080501, end: 20080501
  2. FOLINIC ACID [Concomitant]
     Route: 065
     Dates: start: 20080501, end: 20080501
  3. AVASTIN [Suspect]
     Route: 065
     Dates: start: 20080501, end: 20080501
  4. OXALIPLATIN [Suspect]
     Indication: COLON CANCER METASTATIC
     Route: 065
     Dates: start: 20080501, end: 20080501

REACTIONS (2)
  - PSORIASIS [None]
  - SKIN HAEMORRHAGE [None]
